FAERS Safety Report 20985975 (Version 1)
Quarter: 2022Q2

REPORT INFORMATION
  Report Type: Spontaneous
  Country: US (occurrence: None)
  Receive Date: 20220619
  Receipt Date: 20220619
  Transmission Date: 20220721
  Serious: No
  Sender: FDA-Public Use
  Company Number: None

PATIENT
  Age: 66 Year
  Sex: Male
  Weight: 97 kg

DRUGS (2)
  1. PAXLOVID [Suspect]
     Active Substance: NIRMATRELVIR\RITONAVIR
     Indication: COVID-19
     Dosage: FREQUENCY : TWICE A DAY;?
     Route: 048
     Dates: start: 20220607, end: 20220612
  2. LISINOPRIL [Concomitant]
     Active Substance: LISINOPRIL

REACTIONS (2)
  - Symptom recurrence [None]
  - SARS-CoV-2 test positive [None]

NARRATIVE: CASE EVENT DATE: 20220618
